FAERS Safety Report 12523195 (Version 1)
Quarter: 2016Q3

REPORT INFORMATION
  Report Type: Spontaneous
  Country: US (occurrence: US)
  Receive Date: 20160702
  Receipt Date: 20160702
  Transmission Date: 20161109
  Serious: Yes (Hospitalization, Other)
  Sender: FDA-Public Use
  Company Number: US-ZYDUS-011410

PATIENT
  Age: 69 Year
  Sex: Female

DRUGS (2)
  1. ACICLOVIR [Suspect]
     Active Substance: ACYCLOVIR
     Indication: ORAL HERPES
     Route: 042
  2. ACICLOVIR [Suspect]
     Active Substance: ACYCLOVIR
     Indication: ODYNOPHAGIA
     Route: 042

REACTIONS (5)
  - Myoclonus [Recovered/Resolved]
  - Unresponsive to stimuli [Recovered/Resolved]
  - Neurotoxicity [Recovered/Resolved]
  - Drug dose titration not performed [Recovered/Resolved]
  - Confusional state [Recovered/Resolved]
